FAERS Safety Report 6706908-6 (Version None)
Quarter: 2010Q2

REPORT INFORMATION
  Report Type: 
  Country: None (occurrence: None)
  Receive Date: 20100430
  Receipt Date: 20100430
  Transmission Date: 20101027
  Serious: No
  Sender: FDA-Public Use
  Company Number: None

PATIENT
  Age: 45 Year
  Sex: Male
  Weight: 70 kg

DRUGS (1)
  1. ZOLOFT [Suspect]
     Indication: PANIC DISORDER
     Dosage: 50-150 MG GRADUALLY INCREASED DAILY
     Dates: start: 20070601, end: 20080201

REACTIONS (5)
  - ERECTILE DYSFUNCTION [None]
  - GENITAL HYPOAESTHESIA [None]
  - LIBIDO DECREASED [None]
  - PREMATURE EJACULATION [None]
  - SEXUAL DYSFUNCTION [None]
